FAERS Safety Report 21535119 (Version 1)
Quarter: 2022Q4

REPORT INFORMATION
  Report Type: Spontaneous
  Country: AU (occurrence: AU)
  Receive Date: 20221101
  Receipt Date: 20221101
  Transmission Date: 20230113
  Serious: Yes (Other)
  Sender: FDA-Public Use
  Company Number: AU-009507513-2210AUS009830

PATIENT
  Age: 78 Year
  Sex: Male

DRUGS (2)
  1. PEMBROLIZUMAB [Suspect]
     Active Substance: PEMBROLIZUMAB
     Indication: Metastatic malignant melanoma
     Dosage: UNK
  2. VEMURAFENIB [Suspect]
     Active Substance: VEMURAFENIB
     Indication: Metastatic malignant melanoma
     Dosage: UNK

REACTIONS (2)
  - Immune-mediated arthritis [Recovered/Resolved]
  - Arthralgia [Recovered/Resolved]
